FAERS Safety Report 5628740-7 (Version None)
Quarter: 2008Q1

REPORT INFORMATION
  Report Type: 
  Country: None (occurrence: None)
  Receive Date: 20080215
  Receipt Date: 20080205
  Transmission Date: 20080703
  Serious: Yes (Other)
  Sender: FDA-Public Use
  Company Number: US-PFIZER INC-2008012480

PATIENT
  Sex: Male
  Weight: 90.9 kg

DRUGS (5)
  1. LYRICA [Suspect]
     Indication: NEUROPATHY PERIPHERAL
     Dosage: DAILY DOSE:300MG
  2. LISINOPRIL [Concomitant]
     Indication: HYPERTENSION
  3. SIMVASTATIN [Concomitant]
  4. VITAMINS [Concomitant]
  5. DIAZEPAM [Concomitant]

REACTIONS (3)
  - DYSPNOEA [None]
  - PULMONARY HYPERTENSION [None]
  - WEIGHT INCREASED [None]
